FAERS Safety Report 9684239 (Version 2)
Quarter: 2013Q4

REPORT INFORMATION
  Report Type: Spontaneous
  Country: US (occurrence: US)
  Receive Date: 20131112
  Receipt Date: 20131209
  Transmission Date: 20140711
  Serious: Yes (Other)
  Sender: FDA-Public Use
  Company Number: US-GLAXOSMITHKLINE-A1049311A

PATIENT
  Age: 32 Year
  Sex: Male

DRUGS (1)
  1. VOTRIENT [Suspect]
     Indication: SOFT TISSUE CANCER
     Dosage: 800MG PER DAY
     Route: 048
     Dates: start: 20130801, end: 20131104

REACTIONS (3)
  - Terminal state [Recovered/Resolved]
  - Haemoptysis [Recovered/Resolved]
  - Metastases to lung [Unknown]
